FAERS Safety Report 5781061-4 (Version None)
Quarter: 2008Q2

REPORT INFORMATION
  Report Type: 
  Country: None (occurrence: None)
  Receive Date: 20080620
  Receipt Date: 20080609
  Transmission Date: 20081010
  Serious: Yes (Hospitalization, Other)
  Sender: FDA-Public Use
  Company Number: US-PFIZER INC-2008049597

PATIENT
  Sex: Male
  Weight: 104.3 kg

DRUGS (4)
  1. LYRICA [Suspect]
     Indication: NEURALGIA
  2. VALIUM [Suspect]
  3. LORTAB [Concomitant]
  4. PAXIL [Concomitant]

REACTIONS (4)
  - CONVULSION [None]
  - DIZZINESS [None]
  - MIGRAINE [None]
  - MUSCLE SPASMS [None]
